FAERS Safety Report 21994864 (Version 5)
Quarter: 2023Q2

REPORT INFORMATION
  Report Type: Report from Study
  Country: CA (occurrence: CA)
  Receive Date: 20230215
  Receipt Date: 20230406
  Transmission Date: 20230721
  Serious: Yes (Hospitalization, Other)
  Sender: FDA-Public Use
  Company Number: CA-OTSUKA-2021_039816

PATIENT
  Age: 86 Year
  Sex: Male

DRUGS (2)
  1. CEDAZURIDINE\DECITABINE [Suspect]
     Active Substance: CEDAZURIDINE\DECITABINE
     Indication: Myelodysplastic syndrome
     Dosage: (35 MG DECITABINE AND 100 MG CEDAZURIDINE)
     Route: 065
     Dates: start: 20211108
  2. CEDAZURIDINE\DECITABINE [Suspect]
     Active Substance: CEDAZURIDINE\DECITABINE
     Dosage: 3 DF,(3 PILLS/CYCLE)
     Route: 065

REACTIONS (15)
  - Malaise [Unknown]
  - Pneumonia necrotising [Unknown]
  - Infectious pleural effusion [Unknown]
  - Cardiac arrest [Recovered/Resolved]
  - Gait disturbance [Unknown]
  - Haemoglobin decreased [Recovering/Resolving]
  - Pneumonia [Unknown]
  - Platelet count increased [Recovered/Resolved]
  - Red blood cell count abnormal [Unknown]
  - Hypersomnia [Unknown]
  - Full blood count abnormal [Unknown]
  - Fatigue [Unknown]
  - Therapy interrupted [Unknown]
  - Product blister packaging issue [Unknown]
  - Product use issue [Unknown]

NARRATIVE: CASE EVENT DATE: 20211112
